FAERS Safety Report 20430433 (Version 1)
Quarter: 2022Q1

REPORT INFORMATION
  Report Type: Spontaneous
  Country: FR (occurrence: FR)
  Receive Date: 20220204
  Receipt Date: 20220204
  Transmission Date: 20220424
  Serious: Yes (Death, Other)
  Sender: FDA-Public Use
  Company Number: FR-AFSSAPS-CN20211041

PATIENT
  Age: 74 Year
  Sex: Female
  Weight: 56 kg

DRUGS (8)
  1. ALBUTEROL [Interacting]
     Active Substance: ALBUTEROL
     Indication: Chronic obstructive pulmonary disease
     Dosage: 3 DOSAGE FORM, ONCE A DAY
     Route: 055
     Dates: start: 20210225, end: 20210306
  2. VERAPAMIL [Interacting]
     Active Substance: VERAPAMIL HYDROCHLORIDE
     Indication: Hypertension
     Dosage: 240 MILLIGRAM, ONCE A DAY
     Route: 048
  3. RILMENIDINE PHOSPHATE [Interacting]
     Active Substance: RILMENIDINE PHOSPHATE
     Indication: Hypertension
     Dosage: 1 MILLIGRAM, ONCE A DAY
     Route: 048
     Dates: start: 20210305, end: 20210306
  4. PERINDOPRIL [Interacting]
     Active Substance: PERINDOPRIL
     Indication: Hypertension
     Dosage: 4 MILLIGRAM, ONCE A DAY
     Route: 048
     Dates: start: 20210302, end: 20210306
  5. FUROSEMIDE [Concomitant]
     Active Substance: FUROSEMIDE
     Indication: Cardiac failure
     Dosage: 80 MILLIGRAM, ONCE A DAY
     Route: 048
     Dates: start: 20210305, end: 20210306
  6. IPRATROPIUM AGUETTANT [Concomitant]
     Indication: Chronic obstructive pulmonary disease
     Dosage: 3 DOSAGE FORM, ONCE A DAY
     Route: 055
     Dates: start: 20210225, end: 20210306
  7. KEPPRA [Concomitant]
     Active Substance: LEVETIRACETAM
     Indication: Prophylaxis
     Dosage: 1000 MILLIGRAM, ONCE A DAY
     Route: 041
     Dates: start: 20210224, end: 20210306
  8. LEVOTHYROXINE [Concomitant]
     Active Substance: LEVOTHYROXINE
     Indication: Hypothyroidism
     Dosage: 50 MICROGRAM, ONCE A DAY
     Route: 065
     Dates: end: 20210306

REACTIONS (1)
  - Cardiac failure acute [Fatal]

NARRATIVE: CASE EVENT DATE: 20210306
